FAERS Safety Report 10987296 (Version 2)
Quarter: 2015Q2

REPORT INFORMATION
  Report Type: Spontaneous
  Country: US (occurrence: US)
  Receive Date: 20150404
  Receipt Date: 20150525
  Transmission Date: 20150821
  Serious: No
  Sender: FDA-Public Use
  Company Number: US-JNJFOC-20141003289

PATIENT
  Age: 41 Year
  Sex: Female

DRUGS (3)
  1. REMICADE [Suspect]
     Active Substance: INFLIXIMAB
     Indication: CROHN^S DISEASE
     Route: 042
     Dates: start: 20140822
  2. 6-MERCAPTOPURINE [Concomitant]
     Active Substance: MERCAPTOPURINE
     Route: 065
  3. REMICADE [Suspect]
     Active Substance: INFLIXIMAB
     Indication: CROHN^S DISEASE
     Route: 042

REACTIONS (5)
  - Throat tightness [Unknown]
  - Urticaria [Unknown]
  - Infusion related reaction [Unknown]
  - Throat irritation [Unknown]
  - Pruritus [Unknown]

NARRATIVE: CASE EVENT DATE: 20140822
